FAERS Safety Report 9132657 (Version 3)
Quarter: 2013Q3

REPORT INFORMATION
  Report Type: Report from Study
  Country: US (occurrence: US)
  Receive Date: 20130301
  Receipt Date: 20130722
  Transmission Date: 20140515
  Serious: Yes (Death, Life-Threatening, Hospitalization)
  Sender: FDA-Public Use
  Company Number: US-ROCHE-1186512

PATIENT
  Age: 51 Year
  Sex: Female
  Weight: 51.4 kg

DRUGS (5)
  1. BEVACIZUMAB [Suspect]
     Indication: NON-SMALL CELL LUNG CANCER
     Dosage: DATE OF LATEST DOSE : 25/JAN/2013
     Route: 042
     Dates: start: 20121207
  2. VINORELBINE [Suspect]
     Indication: NON-SMALL CELL LUNG CANCER
     Dosage: 30/MG/M2/DAY ;  DATE OF LAST DOSE PRIOR TO SAE : 25/JAN/2013
     Route: 042
     Dates: start: 20121207
  3. VINORELBINE [Suspect]
     Dosage: REDUCED DOSE
     Route: 042
     Dates: start: 20121207
  4. CISPLATIN [Suspect]
     Indication: NON-SMALL CELL LUNG CANCER
     Dosage: DATE OF LAST DOSE : 25/JAN/2013
     Route: 042
  5. CISPLATIN [Suspect]
     Dosage: DOSE REDUCED BY 25 PER CENT
     Route: 042

REACTIONS (3)
  - Sepsis [Fatal]
  - Wound dehiscence [Unknown]
  - Dehydration [Recovering/Resolving]
